FAERS Safety Report 17055988 (Version 6)
Quarter: 2020Q2

REPORT INFORMATION
  Report Type: Report from Study
  Country: US (occurrence: US)
  Receive Date: 20191121
  Receipt Date: 20200623
  Transmission Date: 20200713
  Serious: Yes (Hospitalization, Other)
  Sender: FDA-Public Use
  Company Number: NVSC2019US040583

PATIENT
  Age: 53 Year
  Sex: Female

DRUGS (1)
  1. GILENYA [Suspect]
     Active Substance: FINGOLIMOD HYDROCHLORIDE
     Indication: MULTIPLE SCLEROSIS
     Dosage: 0.5 MG, QD
     Route: 048
     Dates: start: 20190918

REACTIONS (10)
  - Off label use [Unknown]
  - Muscular weakness [Not Recovered/Not Resolved]
  - Urinary tract infection [Recovering/Resolving]
  - Multiple sclerosis relapse [Recovering/Resolving]
  - Asthenia [Recovering/Resolving]
  - Mood swings [Not Recovered/Not Resolved]
  - Secondary progressive multiple sclerosis [Not Recovered/Not Resolved]
  - Hypersensitivity [Recovering/Resolving]
  - Walking disability [Not Recovered/Not Resolved]
  - Visual impairment [Not Recovered/Not Resolved]

NARRATIVE: CASE EVENT DATE: 20190918
